FAERS Safety Report 18132457 (Version 1)
Quarter: 2020Q3

REPORT INFORMATION
  Report Type: Spontaneous
  Country: US (occurrence: US)
  Receive Date: 20200811
  Receipt Date: 20200811
  Transmission Date: 20201103
  Serious: Yes (Other)
  Sender: FDA-Public Use
  Company Number: US-CADILA HEALTHCARE LIMITED-US-ZYDUS-054207

PATIENT

DRUGS (1)
  1. TEMOZOLOMIDE. [Suspect]
     Active Substance: TEMOZOLOMIDE
     Indication: MALIGNANT MELANOMA
     Dosage: 75 MILLIGRAM/SQ. METER, QD (FOR 6 WEEKS ON, 2 WEEKS OFF SCHEDULE)
     Route: 065

REACTIONS (2)
  - Drug effective for unapproved indication [Unknown]
  - Vitiligo [Unknown]
